FAERS Safety Report 6278067-8 (Version None)
Quarter: 2009Q3

REPORT INFORMATION
  Report Type: 
  Country: None (occurrence: None)
  Receive Date: 20090722
  Receipt Date: 20090717
  Transmission Date: 20100115
  Serious: Yes (Death, Disabling)
  Sender: FDA-Public Use
  Company Number: PHEH2009US07512

PATIENT
  Sex: Male
  Weight: 62.132 kg

DRUGS (9)
  1. EXJADE [Suspect]
     Indication: MYELODYSPLASTIC SYNDROME
     Dosage: 1250 MG DAILY
     Route: 048
     Dates: start: 20090317, end: 20090602
  2. EXJADE [Suspect]
     Indication: APLASTIC ANAEMIA
  3. EXJADE [Suspect]
     Indication: IRON OVERLOAD
  4. DARVOCET-N 100 [Concomitant]
     Indication: PAIN
     Dosage: 1 TAB EVERY 4 HOURS AS NEEDED
     Route: 048
     Dates: end: 20090601
  5. TRAZODONE [Concomitant]
     Indication: DEPRESSION
     Dosage: 50 MG, QD
     Route: 048
     Dates: end: 20090601
  6. TRAZODONE [Concomitant]
     Indication: INSOMNIA
  7. XANAX [Concomitant]
     Indication: ANXIETY
     Dosage: 0.5 MG, PRN DAILY
     Route: 048
     Dates: end: 20090601
  8. HYDROCODONE [Concomitant]
     Indication: PAIN
     Dosage: 5/500 1-2 TAB EVERY 4-6 HOURS PRN
     Route: 048
     Dates: end: 20090601
  9. REQUIP [Concomitant]
     Indication: PARKINSON'S DISEASE
     Dosage: 0.5 MG, QD
     Route: 048
     Dates: end: 20090601

REACTIONS (3)
  - DEATH [None]
  - DISEASE PROGRESSION [None]
  - MALIGNANT NEOPLASM PROGRESSION [None]
